FAERS Safety Report 5694384-4 (Version None)
Quarter: 2008Q2

REPORT INFORMATION
  Report Type: 
  Country: None (occurrence: None)
  Receive Date: 20080402
  Receipt Date: 20080402
  Transmission Date: 20081010
  Serious: Yes (Death)
  Sender: FDA-Public Use
  Company Number: None

PATIENT
  Age: 44 Year
  Sex: Male
  Weight: 65.7716 kg

DRUGS (10)
  1. ATAZANAVIR SULFATE [Suspect]
     Indication: HIV INFECTION
     Dosage: 300 MG QD PO
     Route: 048
     Dates: start: 20061018, end: 20071219
  2. RITONAVIR [Suspect]
     Indication: HIV INFECTION
     Dosage: 100 MG QD PO
     Route: 048
     Dates: start: 20061018, end: 20071219
  3. TRUVADA [Suspect]
     Indication: HIV INFECTION
     Dosage: 500 MG QD PO
     Route: 048
     Dates: start: 20061018, end: 20071219
  4. EPZICOM [Suspect]
     Indication: HIV INFECTION
     Dosage: 900 MG QD PO
     Route: 048
     Dates: start: 20061018, end: 20071219
  5. LISINOPRIL [Concomitant]
  6. CITALOPRAM HYDROBROMIDE [Concomitant]
  7. KLONOPIN [Concomitant]
  8. FINASTERIDE [Concomitant]
  9. TRAZODONE HCL [Concomitant]
  10. DOXAZOSIN [Concomitant]

REACTIONS (19)
  - ALANINE AMINOTRANSFERASE INCREASED [None]
  - ANXIETY [None]
  - ARRHYTHMIA [None]
  - ASPARTATE AMINOTRANSFERASE INCREASED [None]
  - ASTHENIA [None]
  - BLOOD PRESSURE DIASTOLIC DECREASED [None]
  - BODY TEMPERATURE DECREASED [None]
  - DEPRESSION [None]
  - DISEASE COMPLICATION [None]
  - DRUG INTERACTION [None]
  - FATIGUE [None]
  - HAEMOGLOBIN DECREASED [None]
  - HEART RATE INCREASED [None]
  - HIV INFECTION [None]
  - OVERDOSE [None]
  - PERFORMANCE STATUS DECREASED [None]
  - PNEUMOCYSTIS JIROVECI PNEUMONIA [None]
  - PNEUMONIA [None]
  - SUDDEN DEATH [None]
